FAERS Safety Report 7753364-5 (Version None)
Quarter: 2011Q3

REPORT INFORMATION
  Report Type: 
  Country: None (occurrence: None)
  Receive Date: 20110915
  Receipt Date: 20110909
  Transmission Date: 20111222
  Serious: Yes (Other)
  Sender: FDA-Public Use
  Company Number: GB-TEVA-300440ISR

PATIENT
  Age: 76 Year
  Sex: Female
  Weight: 67 kg

DRUGS (2)
  1. SIMVASTATIN [Suspect]
     Dates: start: 20110725, end: 20110822
  2. SIMVASTATIN [Suspect]
     Dates: start: 20110901

REACTIONS (1)
  - CONTUSION [None]
